FAERS Safety Report 19036766 (Version 1)
Quarter: 2021Q1

REPORT INFORMATION
  Report Type: Spontaneous
  Country: US (occurrence: US)
  Receive Date: 20210322
  Receipt Date: 20210322
  Transmission Date: 20210420
  Serious: No
  Sender: FDA-Public Use
  Company Number: None

PATIENT
  Age: 82 Year
  Sex: Male
  Weight: 90.72 kg

DRUGS (1)
  1. EMPAGLIFLOZIN (EMPAGLIFLOZIN 10MG TAB) [Suspect]
     Active Substance: EMPAGLIFLOZIN
     Indication: DIABETES MELLITUS
     Dosage: ?          OTHER DOSE:1 TAB;OTHER FREQUENCY:AM;?
     Route: 048
     Dates: start: 20200313, end: 20200601

REACTIONS (2)
  - Groin infection [None]
  - Fungal infection [None]

NARRATIVE: CASE EVENT DATE: 20200529
